FAERS Safety Report 4611581-7 (Version None)
Quarter: 2005Q1

REPORT INFORMATION
  Report Type: 
  Country: None (occurrence: None)
  Receive Date: 20050317
  Receipt Date: 20010401
  Transmission Date: 20050727
  Serious: Yes (Death)
  Sender: FDA-Public Use
  Company Number: CA-GLAXOSMITHKLINE-A0546562A

PATIENT
  Weight: 63.2 kg

DRUGS (1)
  1. FLOLAN [Suspect]
     Indication: DRUG USE FOR UNKNOWN INDICATION
     Dates: start: 19980821, end: 20000224

REACTIONS (1)
  - PULMONARY HYPERTENSION [None]
